FAERS Safety Report 4802730-6 (Version None)
Quarter: 2005Q4

REPORT INFORMATION
  Report Type: 
  Country: None (occurrence: None)
  Receive Date: 20051014
  Receipt Date: 20041108
  Transmission Date: 20060501
  Serious: Yes (Life-Threatening)
  Sender: FDA-Public Use
  Company Number: 04P-163-0279940-00

PATIENT
  Age: 57 Year
  Sex: Male

DRUGS (6)
  1. KALETRA [Suspect]
     Indication: HIV INFECTION
     Dosage: 2 IN 1 D, ORAL
     Route: 048
     Dates: start: 20040422
  2. SUSTIVA [Suspect]
     Indication: HIV INFECTION
     Dosage: 600 MG, 1 IN 1 D, ORAL
     Route: 048
     Dates: start: 20040422
  3. FLUCONAZOLE [Concomitant]
  4. BACTRIM [Concomitant]
  5. AZITHROMYCIN [Concomitant]
  6. LANSOPRAZOLE [Concomitant]

REACTIONS (1)
  - HYPERTRIGLYCERIDAEMIA [None]
